FAERS Safety Report 7563712-7 (Version None)
Quarter: 2011Q2

REPORT INFORMATION
  Report Type: 
  Country: None (occurrence: None)
  Receive Date: 20110622
  Receipt Date: 20110616
  Transmission Date: 20111010
  Serious: Yes (Life-Threatening, Hospitalization, Other)
  Sender: FDA-Public Use
  Company Number: PHHY2011GB52901

PATIENT
  Age: 47 Year
  Sex: Male
  Weight: 92 kg

DRUGS (7)
  1. PROPRANOLOL [Suspect]
     Dosage: 10 MG, BID
     Dates: start: 20051214, end: 20060126
  2. ORAMORPH SR [Concomitant]
     Indication: ABDOMINAL PAIN UPPER
     Dosage: UNK
     Dates: start: 20030101
  3. PROZAC [Concomitant]
     Indication: DEPRESSION
     Dosage: UNK
     Dates: start: 20050101
  4. ZOPICLONE [Concomitant]
     Indication: INSOMNIA
     Dosage: UNK
     Dates: start: 20050101
  5. SUNITINIB MALATE [Suspect]
     Indication: RENAL CELL CARCINOMA
     Dosage: 50 MG, QD
     Route: 048
     Dates: start: 20060113, end: 20060125
  6. MS CONTIN [Concomitant]
     Indication: ABDOMINAL PAIN UPPER
     Dosage: UNK
     Dates: start: 20030101
  7. GABAPENTIN [Concomitant]
     Dosage: UNK
     Dates: start: 20051214

REACTIONS (30)
  - SHOCK [None]
  - ISCHAEMIC HEPATITIS [None]
  - ABDOMINAL PAIN UPPER [None]
  - BLOOD PRESSURE ABNORMAL [None]
  - INTRACRANIAL PRESSURE INCREASED [None]
  - ALANINE AMINOTRANSFERASE INCREASED [None]
  - PARTIAL SEIZURES [None]
  - MALAISE [None]
  - VOMITING [None]
  - DIARRHOEA [None]
  - CIRCULATORY COLLAPSE [None]
  - PUPILS UNEQUAL [None]
  - ELECTROCARDIOGRAM QT PROLONGED [None]
  - PAIN [None]
  - HYPOCALCAEMIA [None]
  - PLATELET COUNT DECREASED [None]
  - CARDIAC ARREST [None]
  - ABDOMINAL PAIN [None]
  - TORSADE DE POINTES [None]
  - PULSE ABSENT [None]
  - HEPATOMEGALY [None]
  - NAUSEA [None]
  - PERICARDIAL EFFUSION [None]
  - TENDERNESS [None]
  - SYNCOPE [None]
  - DYSPNOEA [None]
  - HYDRONEPHROSIS [None]
  - VENTRICULAR TACHYCARDIA [None]
  - CHOLELITHIASIS [None]
  - HEART RATE IRREGULAR [None]
